FAERS Safety Report 9197726 (Version 1)
Quarter: 2013Q1

REPORT INFORMATION
  Report Type: Spontaneous
  Country: US (occurrence: US)
  Receive Date: 20130328
  Receipt Date: 20130328
  Transmission Date: 20140127
  Serious: Yes (Death)
  Sender: FDA-Public Use
  Company Number: US-PFIZER INC-2013097886

PATIENT
  Age: 61 Year
  Sex: Male

DRUGS (7)
  1. CHLORAMPHENICOL [Suspect]
     Indication: PYREXIA
     Dosage: 1 GM, Q6H
     Route: 042
  2. CIMETIDINE [Suspect]
     Dosage: UNK
  3. DIGOXIN [Concomitant]
  4. FLURAZEPAM [Concomitant]
  5. FUROSEMIDE [Concomitant]
  6. CHLORDIAZEPOXIDE [Concomitant]
  7. TERBUTALINE [Concomitant]

REACTIONS (1)
  - Bone marrow failure [Fatal]
